FAERS Safety Report 9073470 (Version 2)
Quarter: 2013Q1

REPORT INFORMATION
  Report Type: Spontaneous
  Country: US (occurrence: US)
  Receive Date: 20130216
  Receipt Date: 20130222
  Transmission Date: 20140127
  Serious: Yes (Hospitalization)
  Sender: FDA-Public Use
  Company Number: US-UCBSA-078138

PATIENT
  Age: 64 Year
  Sex: Female
  Weight: 68.03 kg

DRUGS (15)
  1. CIMZIA [Suspect]
     Indication: ARTHRITIS
     Dosage: DOSE: 400MG
     Route: 058
     Dates: end: 20130122
  2. METFORMIN [Concomitant]
     Indication: DIABETES MELLITUS
     Dosage: 850 MG ONE TABLET TWICE DAILY
     Route: 048
     Dates: start: 20071226
  3. GLIMEPIRIDE [Concomitant]
     Indication: DIABETES MELLITUS
     Dosage: ONE TABLET EVERY DAY WITH BREAKFAST
     Route: 048
     Dates: start: 20080205
  4. ASPIRIN [Concomitant]
     Dosage: 81 MG, 1 TABLET DAILY
     Route: 048
     Dates: start: 20080205
  5. ASTROGLIDE [Concomitant]
  6. FISH OIL [Concomitant]
     Dosage: 1000 MG, 1 CAPSULE TWICE DAILY
     Route: 048
     Dates: start: 20080414
  7. ALBUTEROL SULFATE [Concomitant]
     Indication: ASTHMA
     Dosage: (2.5 MG/3 ML) 0.083%, I UNIT DOSE VIA NEBILIZER EVERY 4-6 HOURS
     Route: 055
     Dates: start: 20120830
  8. PRO AIR HFA 108 [Concomitant]
     Indication: ASTHMA
     Dosage: AEROSOL SOLUTION, INHALE 1-2 PUFFS EVERY 4-6 HOURS
     Route: 055
     Dates: start: 20080808
  9. LISINOPRIL [Concomitant]
     Indication: ESSENTIAL HYPERTENSION
     Dosage: 1 TABLET ONCE DAILY
     Route: 048
     Dates: start: 20091118
  10. LOVASTATIN [Concomitant]
     Indication: HYPERCHOLESTEROLAEMIA
     Dosage: 20 MG, TAKE TWO TABLET EVERY DAY IN THE EVENING
     Route: 048
     Dates: start: 20080124
  11. AMITRIPTYLINE HCL [Concomitant]
     Indication: FIBROMYALGIA
     Dosage: 25 MG, ONE TABLET AT BEDTIME
     Route: 048
     Dates: start: 20081205
  12. PROMETHAZINE HCL [Concomitant]
     Indication: HICCUPS
     Dosage: 25 MG, ONE TABLET EVERY 4 HOURS
     Route: 048
  13. TRAMADOL HCL [Concomitant]
     Indication: OSTEOARTHRITIS
     Dosage: 50 MG, ONE TABLET THREE TIMES DAILY
     Route: 048
     Dates: start: 20100624
  14. VITAMIN B-12 [Concomitant]
     Indication: VITAMIN B12 DEFICIENCY
     Dosage: 1000 MCG, 1 TABLET DAILY
     Route: 048
     Dates: start: 20101230
  15. VITAMIN D [Concomitant]
     Indication: VITAMIN D DEFICIENCY
     Dosage: 50000 UNIT ONE CAPSULE EVERY TWO WEEKS ON THE 1ST AND 15TH OF EACH MONTH
     Route: 048
     Dates: start: 20101007

REACTIONS (3)
  - Viral infection [Recovered/Resolved with Sequelae]
  - Mental status changes [Recovered/Resolved]
  - Pyrexia [Recovered/Resolved]
